FAERS Safety Report 6726455-5 (Version None)
Quarter: 2010Q2

REPORT INFORMATION
  Report Type: 
  Country: None (occurrence: None)
  Receive Date: 20100514
  Receipt Date: 20100505
  Transmission Date: 20101027
  Serious: Yes (Hospitalization)
  Sender: FDA-Public Use
  Company Number: US-NOVOPROD-308121

PATIENT
  Sex: Female
  Weight: 52.154 kg

DRUGS (1)
  1. NORDITROPIN NORDIFLEX [Suspect]
     Indication: HYPOTHALAMO-PITUITARY DISORDER
     Dosage: 2 MG, QD
     Route: 058
     Dates: start: 20100404

REACTIONS (6)
  - JOINT SWELLING [None]
  - OEDEMA PERIPHERAL [None]
  - PAIN [None]
  - POLLAKIURIA [None]
  - THIRST [None]
  - WEIGHT INCREASED [None]
